FAERS Safety Report 10213824 (Version 1)
Quarter: 2014Q2

REPORT INFORMATION
  Report Type: Spontaneous
  Country: JP (occurrence: None)
  Receive Date: 20140529
  Receipt Date: 20140529
  Transmission Date: 20141212
  Serious: Yes (Other)
  Sender: FDA-Public Use
  Company Number: AE-SPE-2014-017

PATIENT
  Age: 3 Year
  Sex: 0

DRUGS (1)
  1. MEIACT MS FINE GRANULES (CEFDITOREN PIVOXIL) [Suspect]
     Indication: NASOPHARYNGITIS
     Route: 048

REACTIONS (2)
  - Hypocarnitinaemia [None]
  - Hypoglycaemia [None]
